FAERS Safety Report 4510146-5 (Version None)
Quarter: 2004Q4

REPORT INFORMATION
  Report Type: 
  Country: None (occurrence: None)
  Receive Date: 20041119
  Receipt Date: 20041111
  Transmission Date: 20050328
  Serious: Yes (Death, Other)
  Sender: FDA-Public Use
  Company Number: USA-2004-0017649

PATIENT
  Age: 2 Year
  Sex: Female
  Weight: 11.6 kg

DRUGS (3)
  1. MORPHINE SULFATE [Suspect]
     Indication: CANCER PAIN
     Dosage: SEE IMAGE
  2. KETAMINE HCL [Suspect]
     Indication: CANCER PAIN
     Dosage: SEE TEXT, INTRAVENOUS
     Route: 042
  3. CODEINE (CODEINE) [Suspect]
     Indication: CANCER PAIN
     Dosage: 5 MG, PRN, ORAL
     Route: 048

REACTIONS (14)
  - CONDITION AGGRAVATED [None]
  - CONSTIPATION [None]
  - DISEASE PROGRESSION [None]
  - GENERAL PHYSICAL HEALTH DETERIORATION [None]
  - HALLUCINATION, VISUAL [None]
  - INADEQUATE ANALGESIA [None]
  - METASTATIC NEOPLASM [None]
  - NEUROBLASTOMA [None]
  - PAIN [None]
  - PAIN EXACERBATED [None]
  - RESPIRATORY DEPRESSION [None]
  - SEDATION [None]
  - SOMNOLENCE [None]
  - VOMITING [None]
